FAERS Safety Report 13196760 (Version 2)
Quarter: 2017Q1

REPORT INFORMATION
  Report Type: Spontaneous
  Country: US (occurrence: US)
  Receive Date: 20170208
  Receipt Date: 20170323
  Transmission Date: 20170428
  Serious: Yes (Hospitalization)
  Sender: FDA-Public Use
  Company Number: US-ASTRAZENECA-2017SE12120

PATIENT
  Age: 12559 Day
  Sex: Female

DRUGS (6)
  1. SYMBICORT [Suspect]
     Active Substance: BUDESONIDE\FORMOTEROL FUMARATE DIHYDRATE
     Dosage: 160/4.5 MCG, 2 INHALATIONS TWICE A DAY
     Route: 055
     Dates: start: 20170113
  2. VENTOLIN [Concomitant]
     Active Substance: ALBUTEROL SULFATE
     Indication: PROPHYLAXIS
     Dosage: 2 PUFFS EVERY 4 TO 6 HOURS AS NEEDED
  3. SYMBICORT [Suspect]
     Active Substance: BUDESONIDE\FORMOTEROL FUMARATE DIHYDRATE
     Dosage: 160/4.5 MCG, 2 INHALATIONS TWICE A DAY
     Route: 055
     Dates: end: 20161228
  4. IPATROPIUM ALBUTEROL SOLUTION [Concomitant]
     Indication: WHEEZING
     Dosage: 0.5/2.5MG/3ML EVERY 4 HOURS AS NEEDED
  5. IPATROPIUM ALBUTEROL SOLUTION [Concomitant]
     Indication: COUGH
     Dosage: 0.5/2.5MG/3ML EVERY 4 HOURS AS NEEDED
  6. ALBUTEROL SOLUTION [Concomitant]
     Dosage: 1 VIAL 4 TIMES PER DAY AS NEEDED

REACTIONS (5)
  - Asthma [Unknown]
  - Drug dose omission [Recovered/Resolved]
  - Product quality issue [Unknown]
  - Hypersensitivity [Unknown]
  - Intentional product misuse [Unknown]

NARRATIVE: CASE EVENT DATE: 20161228
